FAERS Safety Report 5922511-X (Version None)
Quarter: 2008Q4

REPORT INFORMATION
  Report Type: 
  Country: None (occurrence: None)
  Receive Date: 20081017
  Receipt Date: 20081008
  Transmission Date: 20090506
  Serious: Yes (Other)
  Sender: FDA-Public Use
  Company Number: PHHY2008KR10357

PATIENT
  Sex: Female

DRUGS (1)
  1. ZOMETA [Suspect]
     Indication: MULTIPLE MYELOMA
     Dosage: 4 MG, QMO
     Dates: start: 20070301, end: 20080201

REACTIONS (9)
  - DENTAL CARE [None]
  - GINGIVAL OEDEMA [None]
  - IMPAIRED HEALING [None]
  - LOCAL SWELLING [None]
  - ORAL DISORDER [None]
  - OSTEONECROSIS [None]
  - PAIN [None]
  - STOMATITIS [None]
  - TOOTHACHE [None]
